FAERS Safety Report 11497350 (Version 2)
Quarter: 2015Q3

REPORT INFORMATION
  Report Type: Spontaneous
  Country: FR (occurrence: FR)
  Receive Date: 20150911
  Receipt Date: 20150930
  Transmission Date: 20151125
  Serious: Yes (Other)
  Sender: FDA-Public Use
  Company Number: FR-GE HEALTHCARE MEDICAL DIAGNOSTICS-OMPQ-PR-1509S-1717

PATIENT
  Age: 50 Year
  Sex: Female
  Weight: 50 kg

DRUGS (2)
  1. OMNIPAQUE [Suspect]
     Active Substance: IOHEXOL
     Indication: DIAGNOSTIC PROCEDURE
  2. OMNIPAQUE [Suspect]
     Active Substance: IOHEXOL
     Indication: HAEMOPTYSIS
     Route: 042
     Dates: start: 20150829, end: 20150829

REACTIONS (3)
  - Oral pruritus [Recovered/Resolved]
  - Throat irritation [Recovered/Resolved]
  - Pharyngeal oedema [Recovered/Resolved]

NARRATIVE: CASE EVENT DATE: 201508
